FAERS Safety Report 8093228-3 (Version None)
Quarter: 2012Q1

REPORT INFORMATION
  Report Type: 
  Country: None (occurrence: None)
  Receive Date: 20120128
  Receipt Date: 20111011
  Transmission Date: 20120608
  Serious: No
  Sender: FDA-Public Use
  Company Number: US-ABBOTT-11P-163-0695318-00

PATIENT
  Age: 64 Year
  Sex: Female

DRUGS (5)
  1. HUMIRA [Suspect]
  2. ALLOPURINOL [Concomitant]
     Indication: GOUT
     Dates: start: 20090501
  3. HUMIRA [Suspect]
     Indication: PSORIASIS
     Dates: start: 20090801, end: 20100701
  4. ATACAND HCT [Concomitant]
     Indication: BLOOD PRESSURE
     Dosage: 32/12.5MG
     Route: 048
  5. CRESTOR [Concomitant]
     Indication: BLOOD CHOLESTEROL INCREASED
     Route: 048

REACTIONS (4)
  - PSORIASIS [None]
  - HEADACHE [None]
  - PYREXIA [None]
  - NAUSEA [None]
